FAERS Safety Report 21825782 (Version 1)
Quarter: 2023Q1

REPORT INFORMATION
  Report Type: Spontaneous
  Country: MX (occurrence: MX)
  Receive Date: 20230105
  Receipt Date: 20230105
  Transmission Date: 20230417
  Serious: Yes (Hospitalization)
  Sender: FDA-Public Use
  Company Number: MX-STRIDES ARCOLAB LIMITED-2023SP000220

PATIENT
  Age: 41 Year
  Sex: Female

DRUGS (7)
  1. CYCLOSPORINE [Suspect]
     Active Substance: CYCLOSPORINE
     Indication: Bone marrow failure
     Dosage: 1 DOSAGE FORM, TID (100 MG CAPSULE THREE TIMES A DAY)
     Route: 065
     Dates: start: 2019
  2. CYCLOSPORINE [Suspect]
     Active Substance: CYCLOSPORINE
     Dosage: 1 DOSAGE FORM, QOD (100 MG CAPSULE EVERY OTHER DAY)
     Route: 065
  3. LEVOTHYROXINE [Concomitant]
     Active Substance: LEVOTHYROXINE
     Indication: Hypothyroidism
     Dosage: 100 MILLIGRAM/DAY
     Route: 065
  4. TRIBEDOCE [CYANOCOBALAMIN;PYRIDOXINE HYDROCHLORIDE;THIAMINE MONONITRAT [Concomitant]
     Indication: Product used for unknown indication
     Dosage: 1 DOSAGE FORM/DAY
     Route: 065
  5. BEDOYECTA TRI [CYANOCOBALAMIN;PYRIDOXINE HYDROCHLORIDE;THIAMINE HYDROC [Concomitant]
     Indication: Product used for unknown indication
     Dosage: 1 DOSAGE FORM/DAY
     Route: 065
  6. CILOCID [Concomitant]
     Indication: Product used for unknown indication
     Dosage: 5 MILLIGRAM/DAY
     Route: 065
  7. AUTRIN [ASCORBIC ACID;CYANOCOBALAMIN WITH INTRINSIC FACTOR CO;FERROUS [Concomitant]
     Indication: Product used for unknown indication
     Dosage: UNK PER DAY
     Route: 065

REACTIONS (3)
  - Gingival hypertrophy [Recovered/Resolved]
  - Periodontitis [Recovered/Resolved]
  - Off label use [Unknown]
